FAERS Safety Report 7406368-6 (Version None)
Quarter: 2011Q2

REPORT INFORMATION
  Report Type: 
  Country: None (occurrence: None)
  Receive Date: 20110411
  Receipt Date: 20110331
  Transmission Date: 20111010
  Serious: Yes (Hospitalization, Other)
  Sender: FDA-Public Use
  Company Number: US-ASTRAZENECA-2011SE18448

PATIENT
  Age: 75 Year
  Sex: Female
  Weight: 56.7 kg

DRUGS (4)
  1. SYMBICORT [Suspect]
     Indication: CHRONIC OBSTRUCTIVE PULMONARY DISEASE
     Dosage: 160 UG, DAILY
     Route: 055
     Dates: start: 20100101
  2. ANTIBIOTIC [Concomitant]
  3. O2 [Concomitant]
  4. PREDNISONE [Concomitant]

REACTIONS (2)
  - PNEUMONIA [None]
  - LUNG NEOPLASM MALIGNANT [None]
